FAERS Safety Report 6726659-1 (Version None)
Quarter: 2010Q2

REPORT INFORMATION
  Report Type: 
  Country: None (occurrence: None)
  Receive Date: 20100514
  Receipt Date: 20100504
  Transmission Date: 20101027
  Serious: Yes (Other)
  Sender: FDA-Public Use
  Company Number: US-ABBOTT-10P-163-0642464-00

PATIENT
  Age: 41 Year
  Sex: Female
  Weight: 96.702 kg

DRUGS (10)
  1. DEPAKOTE [Suspect]
     Indication: BIPOLAR DISORDER
     Dosage: 1000 MG IN AM, 1500MG AT NIGHT
     Route: 048
  2. CHANTIX [Suspect]
     Indication: EX-TOBACCO USER
     Dosage: FILM-COATED TABLET
     Route: 048
     Dates: start: 20080824
  3. CHANTIX [Suspect]
     Dosage: FILM-COATED TABLET, 1 MG CUT IN HALF
     Route: 048
     Dates: start: 20080801
  4. GEODON [Suspect]
     Indication: BIPOLAR DISORDER
     Dosage: HARD
     Route: 048
  5. ABILIFY [Suspect]
     Indication: BIPOLAR DISORDER
     Dosage: 5MG IN AM, 10MG AT NIGHT
     Route: 048
  6. VENLAFAXINE HYDROCHLORIDE [Suspect]
     Indication: DRUG USE FOR UNKNOWN INDICATION
     Route: 048
  7. KLONOPIN [Suspect]
     Indication: ANXIETY
     Route: 048
  8. FLOVENT [Concomitant]
     Indication: DRUG USE FOR UNKNOWN INDICATION
  9. ALBUTEROL [Concomitant]
     Indication: DRUG USE FOR UNKNOWN INDICATION
  10. MONTELUKAST SODIUM [Concomitant]
     Indication: DRUG USE FOR UNKNOWN INDICATION

REACTIONS (14)
  - ABNORMAL DREAMS [None]
  - AGITATION [None]
  - BRONCHITIS [None]
  - CRYING [None]
  - DIZZINESS [None]
  - DRUG LEVEL BELOW THERAPEUTIC [None]
  - HALLUCINATION [None]
  - HEADACHE [None]
  - LUNG DISORDER [None]
  - MALAISE [None]
  - RESTLESSNESS [None]
  - SENSORY DISTURBANCE [None]
  - SMOKE SENSITIVITY [None]
  - WEIGHT INCREASED [None]
